FAERS Safety Report 8538969-6 (Version None)
Quarter: 2012Q3

REPORT INFORMATION
  Report Type: 
  Country: None (occurrence: None)
  Receive Date: 20120726
  Receipt Date: 20120717
  Transmission Date: 20120928
  Serious: Yes (Other)
  Sender: FDA-Public Use
  Company Number: PHHY2012BR062238

PATIENT
  Sex: Female
  Weight: 55 kg

DRUGS (2)
  1. EXELON [Suspect]
     Dosage: 1 DF, BID
     Route: 048
     Dates: start: 20090101
  2. OLCADIL [Suspect]
     Indication: ANXIETY
     Dosage: 1 DF, DAILY
     Route: 048

REACTIONS (2)
  - DEMENTIA ALZHEIMER'S TYPE [None]
  - INSOMNIA [None]
